FAERS Safety Report 20887550 (Version 1)
Quarter: 2022Q2

REPORT INFORMATION
  Report Type: Spontaneous
  Country: CA (occurrence: CA)
  Receive Date: 20220528
  Receipt Date: 20220528
  Transmission Date: 20220721
  Serious: Yes (Hospitalization, Other)
  Sender: FDA-Public Use
  Company Number: CA-LUPIN PHARMACEUTICALS INC.-2022-07588

PATIENT
  Age: 78 Year
  Sex: Male

DRUGS (6)
  1. GABAPENTIN [Suspect]
     Active Substance: GABAPENTIN
     Indication: Product used for unknown indication
     Dosage: UNK UNK, TID, 900 MG IN THE MORNING 600 MG IN THE AFTERNOON AND 900 MG AT NIGHT
     Route: 065
  2. ZOPICLONE [Suspect]
     Active Substance: ZOPICLONE
     Indication: Product used for unknown indication
     Dosage: 7.5 MG, QD AT NIGHT AS-NEEDED
     Route: 065
  3. ACETAMINOPHEN AND CODEINE [Suspect]
     Active Substance: ACETAMINOPHEN\CODEINE PHOSPHATE
     Indication: Product used for unknown indication
     Dosage: 1-2 TABLETS AS NEEDED UP TO FOUR TIMES DAILY
     Route: 065
  4. KETAMINE [Suspect]
     Active Substance: KETAMINE
     Indication: Sciatica
     Dosage: 10 UNK, QD (STARTED AT A RATE OF 10 MGH-1 AND INCREASED TO 50 MGH-1 AS TOLERATED UNTIL A TOTAL DOSE
     Route: 042
     Dates: start: 20210421
  5. KETAMINE [Suspect]
     Active Substance: KETAMINE
     Dosage: 50 UNK, QD (STARTED AT A RATE OF 10 MGH-1 AND INCREASED TO 50 MGH-1 AS TOLERATED UNTIL A TOTAL DOSE
     Route: 042
     Dates: start: 20210421
  6. ATORVASTATIN [Concomitant]
     Active Substance: ATORVASTATIN
     Indication: Hyperlipidaemia
     Dosage: 40 MG, QD
     Route: 065

REACTIONS (2)
  - Inappropriate antidiuretic hormone secretion [Recovered/Resolved]
  - Walking aid user [Unknown]

NARRATIVE: CASE EVENT DATE: 20210423
